FAERS Safety Report 14126158 (Version 1)
Quarter: 2017Q4

REPORT INFORMATION
  Report Type: Spontaneous
  Country: CH (occurrence: CH)
  Receive Date: 20171025
  Receipt Date: 20171025
  Transmission Date: 20180321
  Serious: Yes (Other)
  Sender: FDA-Public Use
  Company Number: CH-PFIZER INC-2016416151

PATIENT
  Age: 38 Year
  Sex: Female

DRUGS (3)
  1. ST. JOHN^S WORT [Suspect]
     Active Substance: ST. JOHN^S WORT
     Indication: BURNOUT SYNDROME
     Dosage: UNK
     Route: 048
     Dates: start: 20160816, end: 20160819
  2. XANAX [Suspect]
     Active Substance: ALPRAZOLAM
     Indication: BURNOUT SYNDROME
     Dosage: 0.25 MG, 1X/DAY
     Route: 048
     Dates: start: 20160815, end: 20160819
  3. ZOLDORM [Suspect]
     Active Substance: ZOLPIDEM TARTRATE
     Indication: BURNOUT SYNDROME
     Dosage: 10 MG, 1X/DAY
     Route: 048
     Dates: start: 20160812, end: 20160819

REACTIONS (6)
  - Haemorrhage in pregnancy [Unknown]
  - Premature rupture of membranes [Unknown]
  - Product use in unapproved indication [Unknown]
  - Retroplacental haematoma [Unknown]
  - Uterine contractions during pregnancy [Unknown]
  - Intentional product misuse [Unknown]

NARRATIVE: CASE EVENT DATE: 20160812
